FAERS Safety Report 6137684-6 (Version None)
Quarter: 2009Q1

REPORT INFORMATION
  Report Type: 
  Country: None (occurrence: None)
  Receive Date: 20090331
  Receipt Date: 20090318
  Transmission Date: 20090719
  Serious: Yes (Hospitalization)
  Sender: FDA-Public Use
  Company Number: US-RB-012987-09

PATIENT
  Age: 43 Year
  Sex: Female

DRUGS (2)
  1. MUCINEX [Suspect]
     Route: 048
     Dates: start: 20090215
  2. LISINOPRIL [Concomitant]
     Dates: start: 20081201

REACTIONS (1)
  - HEART RATE INCREASED [None]
